FAERS Safety Report 5658138-7 (Version None)
Quarter: 2008Q1

REPORT INFORMATION
  Report Type: 
  Country: None (occurrence: None)
  Receive Date: 20080310
  Receipt Date: 20070313
  Transmission Date: 20080703
  Serious: No
  Sender: FDA-Public Use
  Company Number: US-BAYER-200615073BCC

PATIENT
  Age: 64 Year
  Sex: Female
  Weight: 82 kg

DRUGS (5)
  1. ALEVE [Suspect]
     Indication: HEADACHE
     Dosage: TOTAL DAILY DOSE: 440 MG  UNIT DOSE: 220 MG
     Route: 048
     Dates: start: 20061220
  2. ALEVE [Suspect]
     Dosage: TOTAL DAILY DOSE: 440 MG  UNIT DOSE: 220 MG
     Route: 048
     Dates: start: 20061221
  3. LEXAPRO [Concomitant]
  4. ZYPREXA [Concomitant]
  5. ZOCOR [Concomitant]

REACTIONS (5)
  - CLUMSINESS [None]
  - DYSARTHRIA [None]
  - FATIGUE [None]
  - LETHARGY [None]
  - MENTAL IMPAIRMENT [None]
